FAERS Safety Report 21474593 (Version 4)
Quarter: 2023Q1

REPORT INFORMATION
  Report Type: Report from Study
  Country: JP (occurrence: JP)
  Receive Date: 20221018
  Receipt Date: 20230329
  Transmission Date: 20230418
  Serious: Yes (Hospitalization, Other)
  Sender: FDA-Public Use
  Company Number: JP-NOVARTISPH-NVSJ2022JP099112

PATIENT
  Age: 85 Year
  Sex: Female

DRUGS (2)
  1. TABRECTA [Suspect]
     Active Substance: CAPMATINIB
     Indication: Non-small cell lung cancer recurrent
     Dosage: 800 MG
     Route: 048
     Dates: start: 20220830, end: 20220929
  2. TABRECTA [Suspect]
     Active Substance: CAPMATINIB
     Dosage: 400 MG
     Route: 048
     Dates: start: 20220930, end: 20221004

REACTIONS (2)
  - Skin disorder [Recovered/Resolved]
  - Renal impairment [Recovered/Resolved]

NARRATIVE: CASE EVENT DATE: 20220925
